FAERS Safety Report 21909821 (Version 2)
Quarter: 2023Q1

REPORT INFORMATION
  Report Type: Spontaneous
  Country: AR (occurrence: AR)
  Receive Date: 20230125
  Receipt Date: 20230213
  Transmission Date: 20230417
  Serious: Yes (Other)
  Sender: FDA-Public Use
  Company Number: None

PATIENT
  Sex: Female

DRUGS (3)
  1. DRONEDARONE [Interacting]
     Active Substance: DRONEDARONE
     Dosage: UNK
  2. AMLODIPINE [Interacting]
     Active Substance: AMLODIPINE BESYLATE
     Dosage: UNK
  3. DIGOXIN [Interacting]
     Active Substance: DIGOXIN
     Dosage: UNK

REACTIONS (4)
  - Acute kidney injury [Unknown]
  - Diarrhoea [Unknown]
  - Atrioventricular block first degree [Unknown]
  - Drug interaction [Unknown]
